FAERS Safety Report 5855482-5 (Version None)
Quarter: 2008Q3

REPORT INFORMATION
  Report Type: 
  Country: None (occurrence: None)
  Receive Date: 20080821
  Receipt Date: 20080812
  Transmission Date: 20090109
  Serious: Yes (Hospitalization)
  Sender: FDA-Public Use
  Company Number: 2008001938

PATIENT
  Age: 26 Year
  Sex: Male

DRUGS (9)
  1. ERLOTINIB (ERLOTINIB) (TBLET) (ERLOTINIB) [Suspect]
     Indication: ANAPLASTIC ASTROCYTOMA
     Dosage: (200 MG, QD), ORAL
     Route: 048
     Dates: start: 20080520, end: 20080624
  2. BEVACIZUMAB (INJECTION FOR INFUSION) [Suspect]
     Indication: ANAPLASTIC ASTROCYTOMA
     Dosage: (826 MG, Q2W), INTRAVENOUS
     Route: 042
     Dates: start: 20080520, end: 20080614
  3. ACETAMINOPHEN [Concomitant]
  4. KEPPRA [Concomitant]
  5. LORAZEPAM [Concomitant]
  6. HYDROXYZINE [Concomitant]
  7. HCL (HYDROCHLORIC ACID) [Concomitant]
  8. PREDNISONE TAB [Concomitant]
  9. MINOCYCLINE HCL [Concomitant]

REACTIONS (3)
  - OPEN WOUND [None]
  - POSTOPERATIVE WOUND COMPLICATION [None]
  - SECRETION DISCHARGE [None]
